FAERS Safety Report 7572256-8 (Version None)
Quarter: 2011Q2

REPORT INFORMATION
  Report Type: 
  Country: None (occurrence: None)
  Receive Date: 20110624
  Receipt Date: 20110613
  Transmission Date: 20111010
  Serious: Yes (Hospitalization)
  Sender: FDA-Public Use
  Company Number: PHHY2011US52205

PATIENT
  Sex: Female

DRUGS (8)
  1. ANAGRELIDE HCL [Concomitant]
     Dosage: 1 MG, QD
  2. COREG [Concomitant]
     Dosage: 6.25 MG, BID
  3. PREMARIN [Concomitant]
     Dosage: 0.625 OT, QD
  4. TASIGNA [Suspect]
     Dosage: 200 MG, BID
     Dates: start: 20110201
  5. SYNTHROID [Concomitant]
     Dosage: 88 UG, QD
  6. TORSEMIDE [Concomitant]
     Dosage: 20 MG, BID
  7. ALLOPURINOL [Concomitant]
     Dosage: 100 MG, QD
  8. MIDODRINE HYDROCHLORIDE [Concomitant]
     Dosage: 2.5 MG, BID

REACTIONS (2)
  - NAUSEA [None]
  - WEIGHT DECREASED [None]
